FAERS Safety Report 25061901 (Version 2)
Quarter: 2025Q3

REPORT INFORMATION
  Report Type: Report from Study
  Country: US (occurrence: US)
  Receive Date: 20250311
  Receipt Date: 20250815
  Transmission Date: 20251020
  Serious: Yes (Other)
  Sender: ABBVIE
  Company Number: US-ABBVIE-6166230

PATIENT
  Age: 46 Year
  Sex: Female

DRUGS (8)
  1. SKYRIZI [Suspect]
     Active Substance: RISANKIZUMAB-RZAA
     Indication: Psoriasis
     Route: 058
     Dates: start: 20240913, end: 20250329
  2. AMOXICILLIN\CLAVULANIC ACID [Concomitant]
     Active Substance: AMOXICILLIN\CLAVULANIC ACID
     Indication: Febrile neutropenia
     Dosage: 875-125 MG
     Route: 048
     Dates: start: 20240306, end: 20240308
  3. AMOXICILLIN\CLAVULANIC ACID [Concomitant]
     Active Substance: AMOXICILLIN\CLAVULANIC ACID
     Indication: Febrile neutropenia
     Dosage: 875-125 MG
     Route: 048
     Dates: start: 20240306, end: 20240315
  4. ATORVASTATIN [Concomitant]
     Active Substance: ATORVASTATIN
     Indication: Non-cardiac chest pain
     Route: 048
     Dates: start: 20240307, end: 20240410
  5. PIPERACILLIN AND TAZOBACTAM [Concomitant]
     Active Substance: PIPERACILLIN SODIUM\TAZOBACTAM SODIUM
     Indication: Febrile neutropenia
     Dates: start: 20240906, end: 20241007
  6. PIPERACILLIN AND TAZOBACTAM [Concomitant]
     Active Substance: PIPERACILLIN SODIUM\TAZOBACTAM SODIUM
     Indication: Febrile neutropenia
     Route: 042
     Dates: start: 20240307, end: 20240307
  7. NITROGLYCERIN [Concomitant]
     Active Substance: NITROGLYCERIN
     Indication: Non-cardiac chest pain
     Route: 060
     Dates: start: 20240306, end: 20240306
  8. ALBUTEROL [Concomitant]
     Active Substance: ALBUTEROL
     Indication: Non-cardiac chest pain
     Route: 055
     Dates: start: 20240307, end: 20240308

REACTIONS (3)
  - Hip surgery [Recovering/Resolving]
  - Fall [Unknown]
  - Psoriasis [Recovering/Resolving]

NARRATIVE: CASE EVENT DATE: 20250219
